FAERS Safety Report 12352184 (Version 2)
Quarter: 2017Q2

REPORT INFORMATION
  Report Type: Spontaneous
  Country: ES (occurrence: ES)
  Receive Date: 20160510
  Receipt Date: 20170418
  Transmission Date: 20170830
  Serious: Yes (Life-Threatening, Hospitalization, Other)
  Sender: FDA-Public Use
  Company Number: ES-TEVA-658749ISR

PATIENT
  Sex: Male
  Weight: .75 kg

DRUGS (8)
  1. IBUPROFEN. [Suspect]
     Active Substance: IBUPROFEN
     Dosage: 10 MG/KG BODY WEIGHT FIRST DOSE
  2. DOPAMINE [Concomitant]
     Active Substance: DOPAMINE\DOPAMINE HYDROCHLORIDE
     Route: 065
  3. SILDENAFIL. [Suspect]
     Active Substance: SILDENAFIL
     Indication: PULMONARY HYPERTENSION
     Dosage: 2 MG/KG DAILY; 0.5 MG/KG,1 IN 6 HR
     Route: 048
  4. IBUPROFEN. [Suspect]
     Active Substance: IBUPROFEN
     Indication: PATENT DUCTUS ARTERIOSUS
     Dosage: 2 DOSES OF 5 MG/KG GIVEN 24 HOURS APART
     Route: 065
  5. SILDENAFIL. [Suspect]
     Active Substance: SILDENAFIL
     Dosage: 1 MG/KG,1 IN 6 HR
     Route: 048
  6. DOBUTAMINE [Concomitant]
     Active Substance: DOBUTAMINE\DOBUTAMINE HYDROCHLORIDE
     Route: 065
  7. NITRIC OXIDE. [Concomitant]
     Active Substance: NITRIC OXIDE
     Dosage: TITRATED TO 20 PPM
     Route: 055
  8. EPINEPHRINE. [Concomitant]
     Active Substance: EPINEPHRINE
     Route: 065

REACTIONS (2)
  - Pulmonary hypertension [Recovered/Resolved]
  - Retinopathy of prematurity [Unknown]
